FAERS Safety Report 4340584-5 (Version None)
Quarter: 2004Q2

REPORT INFORMATION
  Report Type: 
  Country: None (occurrence: None)
  Receive Date: 20040414
  Receipt Date: 20040330
  Transmission Date: 20050107
  Serious: Yes (Hospitalization)
  Sender: FDA-Public Use
  Company Number: A044-002-004943

PATIENT
  Age: 85 Year
  Sex: Female

DRUGS (6)
  1. ARICEPT [Suspect]
     Indication: DEMENTIA ALZHEIMER'S TYPE
     Dosage: 10 MG, 1 IN 1 D, ORAL
     Route: 048
     Dates: start: 20030425, end: 20031125
  2. TROMBYL (ACETYLSALICYLIC ACID) [Suspect]
     Indication: ATRIAL FIBRILLATION
     Dosage: ORAL
     Route: 048
     Dates: start: 20031124, end: 20031125
  3. FOSAMAX [Suspect]
     Indication: OSTEOPOROSIS
     Dosage: ORAL
     Route: 048
     Dates: end: 20031124
  4. CELEBRA (CELECOXIB) [Suspect]
     Indication: ARTHRALGIA
     Dosage: ORAL
     Route: 048
     Dates: start: 20030425, end: 20031125
  5. ALVEDON (PARACETAMOL) [Concomitant]
  6. CALCICHEW-D3 (LEKOVIT CA) [Concomitant]

REACTIONS (7)
  - ATRIAL FIBRILLATION [None]
  - ESCHERICHIA BACTERAEMIA [None]
  - HAEMATEMESIS [None]
  - HYPOTENSION [None]
  - ILEUS PARALYTIC [None]
  - NECROTISING OESOPHAGITIS [None]
  - OESOPHAGEAL ULCER [None]
